FAERS Safety Report 8249713-4 (Version None)
Quarter: 2012Q1

REPORT INFORMATION
  Report Type: 
  Country: None (occurrence: None)
  Receive Date: 20120316
  Receipt Date: 20110214
  Transmission Date: 20120608
  Serious: Yes (Hospitalization)
  Sender: FDA-Public Use
  Company Number: PHHY2011US09870

PATIENT
  Age: 60 Year
  Sex: Male

DRUGS (15)
  1. SULAR [Suspect]
  2. ATENOLOL [Suspect]
  3. COREG [Suspect]
  4. AZOR [Suspect]
  5. TEKTURNA [Suspect]
     Dosage: 150 MG, ONCE DAILY, ORAL
     Route: 048
  6. BYSTOLIC [Suspect]
  7. HYDROCHLOROTHIAZIDE [Suspect]
     Dosage: ORAL
     Route: 048
  8. LABETALOL HCL [Suspect]
  9. CADUAP [Suspect]
  10. ENALAPRIL MALEATE [Suspect]
  11. LISINOPRIL [Suspect]
  12. CLONIDINE [Suspect]
  13. AMLODIPINE [Suspect]
  14. ACIPHEX [Suspect]
  15. MICARDIS [Suspect]

REACTIONS (7)
  - CONSTIPATION [None]
  - PRURITUS [None]
  - DYSPNOEA [None]
  - ABDOMINAL DISCOMFORT [None]
  - HYPERSENSITIVITY [None]
  - SEDATION [None]
  - RASH [None]
